FAERS Safety Report 9002807 (Version 1)
Quarter: 2012Q4

REPORT INFORMATION
  Report Type: Spontaneous
  Country: KR (occurrence: None)
  Receive Date: 20121226
  Receipt Date: 20121226
  Transmission Date: 20130627
  Serious: Yes (Other)
  Sender: FDA-Public Use
  Company Number: KR-ACCORD-015596

PATIENT
  Age: 9 Year
  Sex: Female

DRUGS (2)
  1. MYCOPHENOLATE MOFETIL [Suspect]
     Indication: KIDNEY TRANSPLANT
     Route: 048
  2. TACROLIMUS [Suspect]
     Indication: KIDNEY TRANSPLANT

REACTIONS (2)
  - Transplant rejection [None]
  - Polyomavirus-associated nephropathy [None]
